FAERS Safety Report 7628963-1 (Version None)
Quarter: 2011Q3

REPORT INFORMATION
  Report Type: 
  Country: None (occurrence: None)
  Receive Date: 20110722
  Receipt Date: 20110714
  Transmission Date: 20111222
  Serious: Yes (Hospitalization, Other)
  Sender: FDA-Public Use
  Company Number: US-BAYER-201036886NA

PATIENT
  Age: 22 Year
  Sex: Female
  Weight: 90.703 kg

DRUGS (4)
  1. HYDROCODONE BITARTRATE [Concomitant]
     Indication: PAIN
     Dosage: UNK
     Dates: start: 20020101, end: 20060101
  2. YASMIN [Suspect]
     Dosage: UNK
     Dates: start: 20060126
  3. IBUPROFEN [Concomitant]
     Dosage: UNK
     Dates: start: 20020101, end: 20030101
  4. YASMIN [Suspect]
     Indication: PRODUCT USED FOR UNKNOWN INDICATION
     Dosage: UNK
     Dates: start: 20020101, end: 20030101

REACTIONS (3)
  - GALLBLADDER DISORDER [None]
  - CHOLECYSTITIS [None]
  - CHOLELITHIASIS [None]
